FAERS Safety Report 5866157-0 (Version None)
Quarter: 2008Q3

REPORT INFORMATION
  Report Type: 
  Country: None (occurrence: None)
  Receive Date: 20080829
  Receipt Date: 20080731
  Transmission Date: 20090109
  Serious: Yes (Death, Other)
  Sender: FDA-Public Use
  Company Number: US-MERCK-0803USA04626

PATIENT
  Age: 11 Year
  Sex: Male
  Weight: 60 kg

DRUGS (7)
  1. SINGULAIR [Suspect]
     Indication: ASTHMA
     Route: 048
     Dates: start: 20040616, end: 20071002
  2. SINGULAIR [Suspect]
     Indication: RHINITIS ALLERGIC
     Route: 048
     Dates: start: 20040616, end: 20071002
  3. ALBUTEROL [Concomitant]
     Route: 065
  4. PROVENTIL [Concomitant]
     Route: 065
  5. ADVAIR DISKUS 100/50 [Concomitant]
     Route: 065
  6. SINGULAIR [Suspect]
     Route: 048
     Dates: start: 20030101, end: 20040616
  7. SINGULAIR [Suspect]
     Route: 048
     Dates: start: 20030101, end: 20040616

REACTIONS (10)
  - ATTENTION DEFICIT/HYPERACTIVITY DISORDER [None]
  - COMPLETED SUICIDE [None]
  - DYSTHYMIC DISORDER [None]
  - GENERALISED ANXIETY DISORDER [None]
  - MAJOR DEPRESSION [None]
  - MOOD ALTERED [None]
  - PERSONALITY CHANGE [None]
  - SUICIDAL IDEATION [None]
  - TREMOR [None]
  - VARICELLA [None]
